FAERS Safety Report 23074489 (Version 2)
Quarter: 2023Q4

REPORT INFORMATION
  Report Type: Spontaneous
  Country: US (occurrence: US)
  Receive Date: 20231017
  Receipt Date: 20231031
  Transmission Date: 20240110
  Serious: Yes (Hospitalization, Other)
  Sender: FDA-Public Use
  Company Number: US-002147023-NVSC2023US222495

PATIENT
  Age: 63 Year
  Sex: Female
  Weight: 52.2 kg

DRUGS (1)
  1. LUTATHERA [Suspect]
     Active Substance: LUTETIUM OXODOTREOTIDE LU-177
     Indication: Testis cancer
     Dosage: 206.6 MCI
     Route: 042
     Dates: start: 20231005

REACTIONS (10)
  - Hypoxia [Unknown]
  - Sepsis [Unknown]
  - Nausea [Unknown]
  - Hypotension [Unknown]
  - Pneumonia [Unknown]
  - Vomiting [Unknown]
  - Purpura [Unknown]
  - Flushing [Unknown]
  - Dyspnoea [Unknown]
  - Skin discolouration [Unknown]

NARRATIVE: CASE EVENT DATE: 20231005
